FAERS Safety Report 10173983 (Version 4)
Quarter: 2015Q2

REPORT INFORMATION
  Report Type: Spontaneous
  Country: US (occurrence: US)
  Receive Date: 20140515
  Receipt Date: 20150514
  Transmission Date: 20150821
  Serious: Yes (Death, Hospitalization, Other)
  Sender: FDA-Public Use
  Company Number: US-009507513-1405USA006850

PATIENT
  Sex: Male
  Weight: 85.99 kg

DRUGS (5)
  1. TRIAMCINOLONE [Concomitant]
     Active Substance: TRIAMCINOLONE
     Indication: RASH PRURITIC
     Dosage: 0.1%, TID
     Route: 061
     Dates: start: 20120328
  2. JANUMET XR [Suspect]
     Active Substance: METFORMIN HYDROCHLORIDE\SITAGLIPTIN PHOSPHATE
     Indication: TYPE 2 DIABETES MELLITUS
     Dosage: 50 MG/ 1000 MG, 2 TABS BID
     Route: 048
     Dates: start: 20120328, end: 20130509
  3. SIMVASTATIN. [Concomitant]
     Active Substance: SIMVASTATIN
     Indication: BLOOD CHOLESTEROL INCREASED
     Dosage: 40 MG, HS
     Dates: start: 20070207, end: 201304
  4. JANUMET XR [Suspect]
     Active Substance: METFORMIN HYDROCHLORIDE\SITAGLIPTIN PHOSPHATE
     Dosage: 50 MG/ 1000 MG, 2 TABS QD
     Route: 048
  5. LISINOPRIL. [Concomitant]
     Active Substance: LISINOPRIL
     Indication: HYPERTENSION
     Dosage: 40 MG, QD
     Dates: start: 20051019, end: 20130201

REACTIONS (31)
  - Metastases to liver [Unknown]
  - Chronic kidney disease [Not Recovered/Not Resolved]
  - Gout [Unknown]
  - Spinal column stenosis [Unknown]
  - Renal impairment [Recovered/Resolved]
  - Gastrooesophageal reflux disease [Unknown]
  - Muscle atrophy [Unknown]
  - Paraesthesia [Unknown]
  - Oedema peripheral [Unknown]
  - Pulmonary congestion [Unknown]
  - Duodenitis [Unknown]
  - Gastritis [Unknown]
  - Acute kidney injury [Unknown]
  - Oedema [Unknown]
  - Pulmonary fibrosis [Unknown]
  - Chest pain [Unknown]
  - Pain [Unknown]
  - Erectile dysfunction [Unknown]
  - Pancreatic neuroendocrine tumour metastatic [Fatal]
  - Metastases to lymph nodes [Unknown]
  - Seizure [Unknown]
  - Nephrolithiasis [Unknown]
  - Hyperkalaemia [Unknown]
  - Polypectomy [Unknown]
  - Restless legs syndrome [Unknown]
  - Wheezing [Unknown]
  - Musculoskeletal chest pain [Unknown]
  - Osteoarthritis [Unknown]
  - Ulcer [Unknown]
  - Dyspnoea [Unknown]
  - Hiatus hernia [Unknown]

NARRATIVE: CASE EVENT DATE: 201203
